FAERS Safety Report 15847583 (Version 3)
Quarter: 2019Q1

REPORT INFORMATION
  Report Type: Spontaneous
  Country: GB (occurrence: GB)
  Receive Date: 20190121
  Receipt Date: 20190301
  Transmission Date: 20190417
  Serious: Yes (Death, Life-Threatening, Hospitalization, Other)
  Sender: FDA-Public Use
  Company Number: GB-AUROBINDO-AUR-APL-2010-01618

PATIENT

DRUGS (3)
  1. CINNARIZINE [Suspect]
     Active Substance: CINNARIZINE
     Indication: PRODUCT USED FOR UNKNOWN INDICATION
     Dosage: 1.125 G,TOTAL
     Route: 048
  2. PARACETAMOL 500 MG SOLUBLE TABLETS (GSL) [Suspect]
     Active Substance: ACETAMINOPHEN
     Indication: PRODUCT USED FOR UNKNOWN INDICATION
     Dosage: 50 G, TOTAL
     Route: 048
  3. ASPIRIN. [Suspect]
     Active Substance: ASPIRIN
     Indication: PRODUCT USED FOR UNKNOWN INDICATION
     Dosage: 3150 MG,UNK,
     Route: 065

REACTIONS (20)
  - Alanine aminotransferase increased [Fatal]
  - Shock [Fatal]
  - Agitation [Fatal]
  - Hypoglycaemia [Fatal]
  - Depressed level of consciousness [Fatal]
  - Multiple organ dysfunction syndrome [Fatal]
  - Respiratory distress [Fatal]
  - Intentional overdose [Fatal]
  - Toxicity to various agents [Fatal]
  - Overdose [Fatal]
  - Acute kidney injury [Fatal]
  - Confusional state [Fatal]
  - Blood creatinine increased [Fatal]
  - Acute respiratory distress syndrome [Fatal]
  - Lactic acidosis [Fatal]
  - Cardiogenic shock [Fatal]
  - International normalised ratio increased [Fatal]
  - Prothrombin time abnormal [Fatal]
  - Blood bilirubin increased [Fatal]
  - Blood glucose fluctuation [Fatal]
